FAERS Safety Report 20745881 (Version 16)
Quarter: 2024Q3

REPORT INFORMATION
  Report Type: Report from Study
  Country: AR (occurrence: AR)
  Receive Date: 20220425
  Receipt Date: 20240809
  Transmission Date: 20241016
  Serious: Yes (Hospitalization, Other)
  Sender: NOVARTIS
  Company Number: AR-NOVARTISPH-NVSC2022AR026789

PATIENT
  Age: 57 Year
  Sex: Female

DRUGS (3)
  1. KISQALI [Suspect]
     Active Substance: RIBOCICLIB
     Indication: Breast cancer metastatic
     Dosage: 200 MG, TID (600 MG, QD (THROUGH THE MOUTH))
     Route: 048
     Dates: start: 20220118, end: 20230429
  2. KISQALI [Suspect]
     Active Substance: RIBOCICLIB
     Dosage: UNK
     Route: 065
     Dates: end: 20240201
  3. KISQALI [Suspect]
     Active Substance: RIBOCICLIB
     Dosage: UNK
     Route: 065
     Dates: start: 202405

REACTIONS (23)
  - Cerebrovascular accident [Unknown]
  - Pleural effusion [Unknown]
  - Dyspnoea [Unknown]
  - Hepatitis C [Unknown]
  - Metastases to bone [Unknown]
  - Breast cancer metastatic [Unknown]
  - Malignant neoplasm progression [Unknown]
  - Thrombocytopenia [Unknown]
  - Discomfort [Unknown]
  - Dysstasia [Unknown]
  - Influenza [Unknown]
  - Conjunctivitis [Unknown]
  - Malaise [Unknown]
  - Peripheral swelling [Unknown]
  - Alopecia [Unknown]
  - Platelet count decreased [Unknown]
  - Dengue fever [Recovered/Resolved]
  - Amnesia [Unknown]
  - Pain in extremity [Recovered/Resolved]
  - Arthralgia [Recovered/Resolved]
  - Inappropriate schedule of product administration [Unknown]
  - Product availability issue [Unknown]
  - Inflammation [Unknown]

NARRATIVE: CASE EVENT DATE: 20220301
